FAERS Safety Report 25895396 (Version 2)
Quarter: 2025Q4

REPORT INFORMATION
  Report Type: Spontaneous
  Country: US (occurrence: US)
  Receive Date: 20251008
  Receipt Date: 20251016
  Transmission Date: 20260117
  Serious: Yes (Death, Hospitalization, Other)
  Sender: RANBAXY
  Company Number: US-SUN PHARMACEUTICAL INDUSTRIES LTD-2025R1-530164

PATIENT
  Age: 6 Decade
  Sex: Male

DRUGS (2)
  1. ALLOPURINOL [Suspect]
     Active Substance: ALLOPURINOL
     Indication: Gout
     Dosage: 50MG DAILY
     Route: 065
  2. COLCHICINE [Suspect]
     Active Substance: COLCHICINE
     Indication: Arthralgia
     Dosage: 0.6 MG DAILY
     Route: 065

REACTIONS (5)
  - Respiratory distress [Fatal]
  - Renal failure [Fatal]
  - Liver function test abnormal [Fatal]
  - Multiple organ dysfunction syndrome [Fatal]
  - Acute hepatic failure [Fatal]
